FAERS Safety Report 13354961 (Version 1)
Quarter: 2017Q1

REPORT INFORMATION
  Report Type: Spontaneous
  Country: IT (occurrence: IT)
  Receive Date: 20170321
  Receipt Date: 20170321
  Transmission Date: 20170429
  Serious: Yes (Other)
  Sender: FDA-Public Use
  Company Number: IT-LEO PHARMA-290087

PATIENT
  Sex: Female

DRUGS (1)
  1. PROTOPIC [Suspect]
     Active Substance: TACROLIMUS
     Indication: CHRONIC GRAFT VERSUS HOST DISEASE
     Dosage: UNK UNK, UNKNOWN FREQ.(FOR 22 MONTHS)
     Route: 061

REACTIONS (2)
  - Squamous cell carcinoma of the oral cavity [Unknown]
  - Product use issue [Unknown]
